FAERS Safety Report 7534152-1 (Version None)
Quarter: 2011Q2

REPORT INFORMATION
  Report Type: 
  Country: None (occurrence: None)
  Receive Date: 20110608
  Receipt Date: 20061023
  Transmission Date: 20111010
  Serious: Yes (Other)
  Sender: FDA-Public Use
  Company Number: PHMT2006CA01169

PATIENT
  Sex: Male

DRUGS (8)
  1. PROPRANOLOL [Concomitant]
     Dosage: UNKNOWN
  2. GLYBURIDE [Concomitant]
     Dosage: UNKNOWN
  3. LACTULOSE [Concomitant]
     Dosage: UNKNOWN
  4. SANDOSTATIN LAR [Suspect]
     Indication: HEPATIC NEOPLASM MALIGNANT NON-RESECTABLE
     Dosage: 20MG EVERY 4 WEEKS
     Dates: start: 20050810
  5. LASIX [Concomitant]
     Dosage: UNKNOWN
  6. PANTOPRAZOLE SODIUM [Concomitant]
     Dosage: UNKNOWN
  7. PRANDASE [Concomitant]
  8. METFFORMIN HYDROCHLORIDE [Concomitant]
     Dosage: UNKNOWN

REACTIONS (10)
  - BLOOD GLUCOSE INCREASED [None]
  - WEIGHT DECREASED [None]
  - BLOOD TEST ABNORMAL [None]
  - RENAL DISORDER [None]
  - CONFUSIONAL STATE [None]
  - TREMOR [None]
  - DIZZINESS [None]
  - GAIT DISTURBANCE [None]
  - DIARRHOEA [None]
  - VISION BLURRED [None]
